FAERS Safety Report 11117189 (Version 2)
Quarter: 2017Q3

REPORT INFORMATION
  Report Type: Spontaneous
  Country: US (occurrence: US)
  Receive Date: 20150515
  Receipt Date: 20170831
  Transmission Date: 20171127
  Serious: No
  Sender: FDA-Public Use
  Company Number: US-PFIZER INC-2015166122

PATIENT
  Sex: Male

DRUGS (1)
  1. CHANTIX [Suspect]
     Active Substance: VARENICLINE TARTRATE
     Indication: SMOKING CESSATION THERAPY
     Dosage: UNK, 2X/DAY (ONE IN MORNING AND ONE IN NIGHT)

REACTIONS (4)
  - Vomiting [Unknown]
  - Nausea [Unknown]
  - Dyspepsia [Unknown]
  - Malaise [Unknown]
